FAERS Safety Report 20568863 (Version 2)
Quarter: 2022Q2

REPORT INFORMATION
  Report Type: Spontaneous
  Country: US (occurrence: None)
  Receive Date: 20220308
  Receipt Date: 20220518
  Transmission Date: 20220720
  Serious: No
  Sender: FDA-Public Use
  Company Number: US-ROCHE-2971385

PATIENT
  Sex: Male

DRUGS (1)
  1. EVRYSDI [Suspect]
     Active Substance: RISDIPLAM
     Indication: Spinal muscular atrophy
     Dosage: ONGOING: YES
     Route: 048
     Dates: start: 20190501

REACTIONS (4)
  - Asthenia [Not Recovered/Not Resolved]
  - Walking distance test [Not Recovered/Not Resolved]
  - Neurological examination abnormal [Not Recovered/Not Resolved]
  - Fatigue [Not Recovered/Not Resolved]
